FAERS Safety Report 7353747-1 (Version None)
Quarter: 2011Q1

REPORT INFORMATION
  Report Type: 
  Country: None (occurrence: None)
  Receive Date: 20110315
  Receipt Date: 20110308
  Transmission Date: 20110831
  Serious: Yes (Other)
  Sender: FDA-Public Use
  Company Number: US-PFIZER INC-2011049416

PATIENT
  Age: 69 Year
  Sex: Male
  Weight: 105 kg

DRUGS (5)
  1. MIDAZOLAM [Concomitant]
  2. PROPOFOL [Concomitant]
  3. FENTANYL [Concomitant]
  4. BACITRACIN [Suspect]
     Dosage: 50000/10 ML
  5. VANCOMYCIN [Concomitant]

REACTIONS (6)
  - HYPOTENSION [None]
  - RASH MACULO-PAPULAR [None]
  - ANAPHYLACTIC REACTION [None]
  - APNOEA [None]
  - HEART RATE DECREASED [None]
  - ERYTHEMA [None]
